FAERS Safety Report 23102755 (Version 7)
Quarter: 2025Q4

REPORT INFORMATION
  Report Type: Spontaneous
  Country: EU (occurrence: EU)
  Receive Date: 20231025
  Receipt Date: 20251216
  Transmission Date: 20260118
  Serious: Yes (Hospitalization, Other)
  Sender: MERCK SHARP & DOHME LLC
  Company Number: None

PATIENT
  Age: 63 Year
  Sex: Male
  Weight: 86.5 kg

DRUGS (9)
  1. PEMBROLIZUMAB [Suspect]
     Active Substance: PEMBROLIZUMAB
     Indication: Oesophageal adenocarcinoma
     Dosage: DOSE DESCRIPTION : 200 MG FLAT DOSE, IV, D1/D22/D43 PRE- AND POST-OP
     Route: 042
     Dates: start: 20230614
  2. PEMBROLIZUMAB [Suspect]
     Active Substance: PEMBROLIZUMAB
     Indication: Oesophageal adenocarcinoma
     Dosage: DOSE DESCRIPTION : AFTERWARDS D1 Q3W; LAST DOSE GIVEN BEFORE ONSET OF THE RAE WAS ON 01-AUG-2023;...
     Route: 042
  3. OXALIPLATIN [Suspect]
     Active Substance: OXALIPLATIN
     Indication: Oesophageal adenocarcinoma
     Dosage: DOSE DESCRIPTION : 85 MG/M2, IV, D1/D15/D29 AND D43 PRE- AND POST-OP; LAST DOSE GIVEN BEFORE ONSE...
     Route: 042
     Dates: start: 20230614
  4. DOCETAXEL [Suspect]
     Active Substance: DOCETAXEL
     Indication: Oesophageal adenocarcinoma
     Dosage: DOSE DESCRIPTION : 50 MG/M2, IV, D1/D15/D29 AND D43 PRE- AND POST-OP; LAST DOSE GIVEN BEFORE ONSE...
     Route: 042
     Dates: start: 20230614
  5. ONTRUZANT [Suspect]
     Active Substance: TRASTUZUMAB-DTTB
     Indication: Oesophageal adenocarcinoma
     Dosage: DOSE DESCRIPTION : D22/D43 PRE- AND POST-OP;
     Route: 042
  6. ONTRUZANT [Suspect]
     Active Substance: TRASTUZUMAB-DTTB
     Indication: Oesophageal adenocarcinoma
     Dosage: DOSE DESCRIPTION : D1: 8 MG/KG
     Route: 042
     Dates: start: 20230614
  7. ONTRUZANT [Suspect]
     Active Substance: TRASTUZUMAB-DTTB
     Indication: Oesophageal adenocarcinoma
     Dosage: DOSE DESCRIPTION : AFTERWARDS 6 MG/KG IV D1 Q3W; LAST DOSE GIVEN BEFORE ONSET OF THE RAE WAS ON 0...
     Route: 042
  8. FLUOROURACIL [Suspect]
     Active Substance: FLUOROURACIL
     Indication: Oesophageal adenocarcinoma
     Dosage: DOSE DESCRIPTION : 2600 MG/M2, IV, D1/D15/D29 AND D43 PRE- AND POST-OP; LAST DOSE GIVEN BEFORE ON...
     Route: 042
     Dates: start: 20230614
  9. LEUCOVORIN [Suspect]
     Active Substance: LEUCOVORIN\LEUCOVORIN CALCIUM
     Indication: Oesophageal adenocarcinoma
     Dosage: DOSE DESCRIPTION : 200 MG/M2, IV, D1/D15/D29 AND D43 PRE- AND POST-OP; LAST DOSE GIVEN BEFORE ONS...
     Route: 042
     Dates: start: 20230614

REACTIONS (7)
  - Surgery [Unknown]
  - Weight decreased [Recovered/Resolved]
  - Gastrointestinal stenosis [Recovered/Resolved]
  - Staphylococcal infection [Recovered/Resolved]
  - Post procedural infection [Recovered/Resolved]
  - Off label use [Unknown]
  - Pyrexia [Unknown]

NARRATIVE: CASE EVENT DATE: 20230918
